FAERS Safety Report 15766173 (Version 1)
Quarter: 2018Q4

REPORT INFORMATION
  Report Type: Spontaneous
  Country: GB (occurrence: GB)
  Receive Date: 20181227
  Receipt Date: 20181227
  Transmission Date: 20190205
  Serious: Yes (Hospitalization)
  Sender: FDA-Public Use
  Company Number: GB-TEVA-2018-GB-991318

PATIENT
  Age: 92 Year
  Sex: Female
  Weight: 47 kg

DRUGS (12)
  1. PARACETAMOL [Concomitant]
     Active Substance: ACETAMINOPHEN
  2. ACCRETE D3 [Concomitant]
     Active Substance: CALCIUM CARBONATE\CHOLECALCIFEROL
  3. ZEROCREAM [Concomitant]
  4. POLYVINYL ALCOHOL [Concomitant]
     Active Substance: POLYVINYL ALCOHOL
  5. OMEPRAZOLE. [Concomitant]
     Active Substance: OMEPRAZOLE
  6. ALGESAL [Concomitant]
     Active Substance: DIETHYLAMINE SALICYLATE
  7. TRAMADOL. [Suspect]
     Active Substance: TRAMADOL
     Indication: ARTHRALGIA
     Dosage: 50 - 100MG
     Route: 048
     Dates: start: 20180601
  8. BEECHAM MULTIVITAMIN [Concomitant]
  9. CANDESARTAN. [Concomitant]
     Active Substance: CANDESARTAN
  10. BENDROFLUMETHIAZIDE [Concomitant]
     Active Substance: BENDROFLUMETHIAZIDE
  11. AMITRIPTYLINE [Concomitant]
     Active Substance: AMITRIPTYLINE
  12. COD-LIVER OIL [Concomitant]
     Active Substance: COD LIVER OIL

REACTIONS (6)
  - Cough [Unknown]
  - Delirium [Recovering/Resolving]
  - Confusional state [Unknown]
  - Constipation [Unknown]
  - Palpitations [Unknown]
  - Hypophagia [Unknown]

NARRATIVE: CASE EVENT DATE: 20181114
